FAERS Safety Report 21609020 (Version 3)
Quarter: 2022Q4

REPORT INFORMATION
  Report Type: Report from Study
  Country: IT (occurrence: IT)
  Receive Date: 20221117
  Receipt Date: 20221122
  Transmission Date: 20230112
  Serious: Yes (Hospitalization, Other)
  Sender: FDA-Public Use
  Company Number: IT-BRISTOL-MYERS SQUIBB COMPANY-2022-135307

PATIENT
  Age: 79 Year
  Sex: Female
  Weight: 56 kg

DRUGS (5)
  1. PACLITAXEL [Suspect]
     Active Substance: PACLITAXEL
     Indication: Adenocarcinoma pancreas
     Route: 042
     Dates: start: 20220707, end: 20220811
  2. LEVOSULPIRIDE [Concomitant]
     Active Substance: LEVOSULPIRIDE
     Indication: Product used for unknown indication
     Route: 065
  3. ACETAMINOPHEN [Concomitant]
     Active Substance: ACETAMINOPHEN
     Indication: Product used for unknown indication
     Route: 065
  4. PANTOPRAZOLE [Concomitant]
     Active Substance: PANTOPRAZOLE
     Indication: Product used for unknown indication
     Route: 065
  5. LEVOTHYROXINE [Concomitant]
     Active Substance: LEVOTHYROXINE
     Indication: Product used for unknown indication
     Route: 065

REACTIONS (10)
  - Diarrhoea [Recovered/Resolved with Sequelae]
  - Mucosal inflammation [Recovering/Resolving]
  - Thrombocytopenia [Recovering/Resolving]
  - Escherichia sepsis [Recovering/Resolving]
  - Escherichia urinary tract infection [Recovering/Resolving]
  - Calculus bladder [Recovering/Resolving]
  - Malignant neoplasm progression [Recovering/Resolving]
  - Collateral circulation [Recovering/Resolving]
  - Oesophagitis [Recovering/Resolving]
  - Device related sepsis [Recovering/Resolving]

NARRATIVE: CASE EVENT DATE: 20220817
